FAERS Safety Report 25257194 (Version 1)
Quarter: 2025Q2

REPORT INFORMATION
  Report Type: Spontaneous
  Country: FR (occurrence: FR)
  Receive Date: 20250430
  Receipt Date: 20250430
  Transmission Date: 20250716
  Serious: Yes (Hospitalization)
  Sender: MYLAN
  Company Number: None

PATIENT
  Age: 76 Year
  Sex: Female

DRUGS (8)
  1. ATORVASTATIN [Interacting]
     Active Substance: ATORVASTATIN
     Indication: Product used for unknown indication
  2. ATORVASTATIN [Interacting]
     Active Substance: ATORVASTATIN
     Route: 048
  3. ATORVASTATIN [Interacting]
     Active Substance: ATORVASTATIN
     Route: 048
  4. ATORVASTATIN [Interacting]
     Active Substance: ATORVASTATIN
  5. FUSIDATE SODIUM [Interacting]
     Active Substance: FUSIDATE SODIUM
     Indication: Wound
     Dates: start: 20220221, end: 20220224
  6. FUSIDATE SODIUM [Interacting]
     Active Substance: FUSIDATE SODIUM
     Route: 048
     Dates: start: 20220221, end: 20220224
  7. FUSIDATE SODIUM [Interacting]
     Active Substance: FUSIDATE SODIUM
     Route: 048
     Dates: start: 20220221, end: 20220224
  8. FUSIDATE SODIUM [Interacting]
     Active Substance: FUSIDATE SODIUM
     Dates: start: 20220221, end: 20220224

REACTIONS (2)
  - Mixed liver injury [Recovered/Resolved]
  - Drug interaction [Recovered/Resolved]

NARRATIVE: CASE EVENT DATE: 20220224
